FAERS Safety Report 16408015 (Version 1)
Quarter: 2019Q2

REPORT INFORMATION
  Report Type: Spontaneous
  Country: US (occurrence: US)
  Receive Date: 20190610
  Receipt Date: 20190610
  Transmission Date: 20190711
  Serious: No
  Sender: FDA-Public Use
  Company Number: US-PRINSTON PHARMACEUTICAL INC.-2019PRN00326

PATIENT
  Sex: Female

DRUGS (4)
  1. DULOXETINE. [Suspect]
     Active Substance: DULOXETINE
     Indication: PAIN
  2. CBD OIL [Suspect]
     Active Substance: CANNABIDIOL\HERBALS
     Indication: PAIN
  3. CBD OIL [Suspect]
     Active Substance: CANNABIDIOL\HERBALS
     Indication: LUMBAR SPINAL STENOSIS
  4. DULOXETINE. [Suspect]
     Active Substance: DULOXETINE
     Indication: LUMBAR SPINAL STENOSIS

REACTIONS (9)
  - Weight decreased [Recovering/Resolving]
  - Irritability [Recovering/Resolving]
  - Dizziness [Recovering/Resolving]
  - Fatigue [Recovering/Resolving]
  - Drug interaction [Recovered/Resolved]
  - Malaise [Recovering/Resolving]
  - Off label use [Recovered/Resolved]
  - Hypophagia [Recovering/Resolving]
  - Drug withdrawal syndrome [Recovering/Resolving]
